FAERS Safety Report 14612077 (Version 1)
Quarter: 2018Q1

REPORT INFORMATION
  Report Type: Spontaneous
  Country: US (occurrence: US)
  Receive Date: 20180307
  Receipt Date: 20180307
  Transmission Date: 20180509
  Serious: Yes (Other)
  Sender: FDA-Public Use
  Company Number: None

PATIENT
  Age: 57 Year
  Sex: Female
  Weight: 54 kg

DRUGS (2)
  1. PAROXETINE. [Concomitant]
     Active Substance: PAROXETINE
  2. TAMIFLU [Suspect]
     Active Substance: OSELTAMIVIR PHOSPHATE
     Indication: INFLUENZA
     Route: 048
     Dates: start: 20180305, end: 20180306

REACTIONS (8)
  - Abnormal behaviour [None]
  - Personality disorder [None]
  - Tremor [None]
  - Psychotic behaviour [None]
  - Hallucination [None]
  - Bipolar I disorder [None]
  - Coordination abnormal [None]
  - Crying [None]

NARRATIVE: CASE EVENT DATE: 20180306
